FAERS Safety Report 17260350 (Version 2)
Quarter: 2020Q1

REPORT INFORMATION
  Report Type: Spontaneous
  Country: US (occurrence: US)
  Receive Date: 20200112
  Receipt Date: 20200212
  Transmission Date: 20200409
  Serious: Yes (Death, Other)
  Sender: FDA-Public Use
  Company Number: US-009507513-2001USA001846

PATIENT
  Age: 43 Year
  Sex: Male

DRUGS (1)
  1. PROSCAR [Suspect]
     Active Substance: FINASTERIDE
     Dosage: UNK
     Route: 048

REACTIONS (2)
  - Death [Fatal]
  - Drug abuse [Unknown]
